FAERS Safety Report 4501059-3 (Version None)
Quarter: 2004Q4

REPORT INFORMATION
  Report Type: 
  Country: None (occurrence: None)
  Receive Date: 20041115
  Receipt Date: 20041025
  Transmission Date: 20050328
  Serious: Yes (Hospitalization)
  Sender: FDA-Public Use
  Company Number: DE-BRISTOL-MYERS SQUIBB COMPANY-12757985

PATIENT
  Age: 67 Year
  Sex: Male

DRUGS (5)
  1. CYCLOPHOSPHAMIDE [Suspect]
     Indication: MULTIPLE MYELOMA
     Dosage: DAYS 1-4 (200 MG/M2)
     Route: 042
     Dates: start: 20021031
  2. DEXAMETHASONE [Suspect]
     Indication: MULTIPLE MYELOMA
     Dosage: DAYS 1-4
     Route: 042
     Dates: start: 20021031
  3. CAELYX [Suspect]
     Indication: MULTIPLE MYELOMA
     Dosage: 34.4 MG ON DAY 1
     Route: 042
     Dates: start: 20021031
  4. MELPHALAN [Concomitant]
  5. ZOMETA [Concomitant]

REACTIONS (4)
  - AGEUSIA [None]
  - DEPRESSION [None]
  - HYPOSMIA [None]
  - WEIGHT DECREASED [None]
